FAERS Safety Report 5530393-3 (Version None)
Quarter: 2007Q4

REPORT INFORMATION
  Report Type: 
  Country: None (occurrence: None)
  Receive Date: 20071130
  Receipt Date: 20071116
  Transmission Date: 20080405
  Serious: Yes (Death, Hospitalization, Disabling, Other)
  Sender: FDA-Public Use
  Company Number: JP-BRISTOL-MYERS SQUIBB COMPANY-12657839

PATIENT
  Age: 53 Year
  Sex: Male

DRUGS (11)
  1. STOCRIN CAPS [Suspect]
     Indication: HIV INFECTION
     Dosage: ONCE DAILY
     Route: 048
     Dates: start: 20040609, end: 20060927
  2. ZERIT [Suspect]
     Indication: HIV INFECTION
     Route: 048
     Dates: start: 19990602, end: 20060927
  3. VIREAD [Suspect]
     Indication: HIV INFECTION
     Route: 048
     Dates: start: 20040609, end: 20040726
  4. VOLTAREN [Suspect]
     Indication: HAEMOPHILIC ARTHROPATHY
     Dosage: DURATION OF THERAPY UNIT NOT GIVEN
     Route: 048
     Dates: start: 20041001, end: 20060927
  5. EPIVIR [Suspect]
     Indication: HIV INFECTION
     Dates: start: 19990602, end: 20060927
  6. URSO 250 [Concomitant]
     Dates: start: 20040616
  7. BLOPRESS [Concomitant]
     Dates: start: 20040616, end: 20041101
  8. ADALAT CC [Concomitant]
     Dates: start: 20040616, end: 20040818
  9. GASTER [Concomitant]
     Dates: start: 20040603, end: 20050914
  10. MUCOSTA [Concomitant]
     Dates: start: 20040603, end: 20041012
  11. VIRACEPT [Concomitant]
     Dates: end: 20040609

REACTIONS (6)
  - HEPATIC FAILURE [None]
  - LIPOATROPHY [None]
  - NEPHROPATHY [None]
  - PROTEINURIA [None]
  - RENAL FAILURE [None]
  - TYPE 2 DIABETES MELLITUS [None]
